FAERS Safety Report 6607265-6 (Version None)
Quarter: 2010Q1

REPORT INFORMATION
  Report Type: 
  Country: None (occurrence: None)
  Receive Date: 20100228
  Receipt Date: 20100215
  Transmission Date: 20100710
  Serious: Yes (Death)
  Sender: FDA-Public Use
  Company Number: US-JNJFOC-20100208307

PATIENT
  Age: 57 Year
  Sex: Male
  Weight: 100.25 kg

DRUGS (3)
  1. FENTANYL [Suspect]
     Indication: SUICIDE ATTEMPT
     Dosage: 100 UG/HR X 4
     Route: 062
  2. OXYCODONE HCL [Suspect]
     Indication: SUICIDE ATTEMPT
     Route: 065
  3. DIAZEPAM [Suspect]
     Indication: SUICIDE ATTEMPT
     Route: 065

REACTIONS (3)
  - COMPLETED SUICIDE [None]
  - DRUG TOXICITY [None]
  - WRONG TECHNIQUE IN DRUG USAGE PROCESS [None]
